FAERS Safety Report 14604558 (Version 1)
Quarter: 2018Q1

REPORT INFORMATION
  Report Type: Spontaneous
  Country: ZA (occurrence: ZA)
  Receive Date: 20180306
  Receipt Date: 20180306
  Transmission Date: 20180509
  Serious: Yes (Hospitalization)
  Sender: FDA-Public Use
  Company Number: ZA-PFIZER INC-2018086524

PATIENT
  Age: 74 Year
  Sex: Female

DRUGS (7)
  1. PRITOR /01102601/ [Suspect]
     Active Substance: TELMISARTAN
     Dosage: 80 MG, UNK
  2. FLORINEF ACETATE [Suspect]
     Active Substance: FLUDROCORTISONE ACETATE
     Dosage: 0.1 MG, UNK
  3. CYNT (MOXONIDIN) [Suspect]
     Active Substance: MOXONIDINE
     Dosage: 0.4 MG, UNK
  4. VESICARE [Suspect]
     Active Substance: SOLIFENACIN SUCCINATE
     Dosage: 5 MG, UNK
  5. NEXMEZOL [Suspect]
     Active Substance: ESOMEPRAZOLE MAGNESIUM
     Dosage: 20 MG, UNK
  6. ASPAVOR [Suspect]
     Active Substance: ATORVASTATIN
     Dosage: 20 MG, UNK
  7. EUTHYROX [Suspect]
     Active Substance: LEVOTHYROXINE SODIUM
     Dosage: 100 UG, UNK

REACTIONS (1)
  - Blood pressure abnormal [Unknown]
